FAERS Safety Report 5748056-8 (Version None)
Quarter: 2008Q2

REPORT INFORMATION
  Report Type: 
  Country: None (occurrence: None)
  Receive Date: 20080523
  Receipt Date: 20080513
  Transmission Date: 20081010
  Serious: Yes (Other)
  Sender: FDA-Public Use
  Company Number: NL-ELI_LILLY_AND_COMPANY-NL200804005167

PATIENT
  Sex: Female

DRUGS (8)
  1. CYMBALTA [Suspect]
     Indication: FACIAL NEURALGIA
     Dosage: 60 MG, DAILY (1/D)
     Route: 048
     Dates: start: 20080306, end: 20080407
  2. CYMBALTA [Suspect]
     Dosage: 120 MG, DAILY (1/D)
     Route: 048
     Dates: start: 20080407
  3. DIAZEPAM [Concomitant]
     Dosage: 5 MG, DAILY (1/D)
     Route: 065
  4. PANTOPRAZOLE SODIUM [Concomitant]
     Dosage: 40 MG, DAILY (1/D)
     Route: 065
  5. PROPRANOLOL [Concomitant]
     Dosage: 80 MG, DAILY (1/D)
     Route: 065
  6. TEMAZEPAM [Concomitant]
     Dosage: 20 MG, DAILY (1/D)
     Route: 048
  7. CYTOTEC [Concomitant]
     Dosage: 200 UG, DAILY (1/D)
     Route: 065
  8. VASELINE [Concomitant]
     Dosage: UNK, UNKNOWN
     Route: 065

REACTIONS (3)
  - CONVULSION [None]
  - EYE DISORDER [None]
  - MUSCLE SPASMS [None]
